FAERS Safety Report 24934165 (Version 1)
Quarter: 2025Q1

REPORT INFORMATION
  Report Type: Report from Study
  Country: US (occurrence: US)
  Receive Date: 20250206
  Receipt Date: 20250206
  Transmission Date: 20250409
  Serious: No
  Sender: EXELIXIS
  Company Number: US-EXELIXIS-EXL-2024-002457

PATIENT
  Age: 76 Year
  Sex: Female
  Weight: 63.9 kg

DRUGS (21)
  1. CABOMETYX [Suspect]
     Active Substance: CABOZANTINIB S-MALATE
     Indication: Renal cell carcinoma
     Dosage: 60 MG, QD
     Route: 048
     Dates: start: 20240711
  2. CABOMETYX [Suspect]
     Active Substance: CABOZANTINIB S-MALATE
     Dosage: 40 MG, QD
     Route: 048
  3. CABOMETYX [Suspect]
     Active Substance: CABOZANTINIB S-MALATE
     Dosage: 40 MG, QD
     Route: 048
  4. GABAPENTIN [Concomitant]
     Active Substance: GABAPENTIN
  5. ACETAMINOPHEN [Concomitant]
     Active Substance: ACETAMINOPHEN
  6. ASPIRIN [Concomitant]
     Active Substance: ASPIRIN
  7. CARVEDILOL [Concomitant]
     Active Substance: CARVEDILOL
  8. DULOXETINE [Concomitant]
     Active Substance: DULOXETINE
  9. FAMOTIDINE [Concomitant]
     Active Substance: FAMOTIDINE
  10. LOMOTIL [Concomitant]
     Active Substance: ATROPINE SULFATE\DIPHENOXYLATE HYDROCHLORIDE
  11. VITAMIN D3 [Concomitant]
     Active Substance: CHOLECALCIFEROL
  12. LANTUS [Concomitant]
     Active Substance: INSULIN GLARGINE
  13. MAGNESIUM [Concomitant]
     Active Substance: MAGNESIUM
  14. MIRABEGRON [Concomitant]
     Active Substance: MIRABEGRON
  15. ONDANSETRON [Concomitant]
     Active Substance: ONDANSETRON
  16. OZEMPIC [Concomitant]
     Active Substance: SEMAGLUTIDE
  17. PRAVASTATIN [Concomitant]
     Active Substance: PRAVASTATIN
  18. PREDNISOLONE [Concomitant]
     Active Substance: PREDNISOLONE
  19. PROCHLORPERAZINE [Concomitant]
     Active Substance: PROCHLORPERAZINE
  20. BIOTIN [Concomitant]
     Active Substance: BIOTIN
  21. ZINC [Concomitant]
     Active Substance: ZINC

REACTIONS (3)
  - Urinary tract infection [Unknown]
  - Mental status changes [Unknown]
  - Product dose omission issue [Unknown]

NARRATIVE: CASE EVENT DATE: 20241112
